FAERS Safety Report 8183766-7 (Version None)
Quarter: 2012Q1

REPORT INFORMATION
  Report Type: 
  Country: None (occurrence: None)
  Receive Date: 20120305
  Receipt Date: 20120301
  Transmission Date: 20120608
  Serious: Yes (Death, Hospitalization)
  Sender: FDA-Public Use
  Company Number: PHHY2011IN64980

PATIENT
  Age: 46 Year
  Sex: Female

DRUGS (1)
  1. TASIGNA [Suspect]
     Indication: CHRONIC MYELOID LEUKAEMIA
     Dosage: 400 MG, BID

REACTIONS (4)
  - NEOPLASM MALIGNANT [None]
  - RENAL DISORDER [None]
  - BLOOD GLUCOSE FLUCTUATION [None]
  - FULL BLOOD COUNT DECREASED [None]
